FAERS Safety Report 6760764-9 (Version None)
Quarter: 2010Q2

REPORT INFORMATION
  Report Type: 
  Country: None (occurrence: None)
  Receive Date: 20100608
  Receipt Date: 20100527
  Transmission Date: 20101027
  Serious: Yes (Other)
  Sender: FDA-Public Use
  Company Number: US-PFIZER INC-2010066984

PATIENT
  Sex: Female

DRUGS (1)
  1. DILANTIN-125 [Suspect]

REACTIONS (1)
  - AMMONIA ABNORMAL [None]
